FAERS Safety Report 5946527-2 (Version None)
Quarter: 2008Q4

REPORT INFORMATION
  Report Type: 
  Country: None (occurrence: None)
  Receive Date: 20081110
  Receipt Date: 20081104
  Transmission Date: 20090506
  Serious: Yes (Other)
  Sender: FDA-Public Use
  Company Number: B0544439A

PATIENT
  Age: 38 Year
  Sex: Male

DRUGS (6)
  1. PAXIL [Suspect]
     Indication: DRUG USE FOR UNKNOWN INDICATION
     Dosage: 30MG PER DAY
     Route: 048
     Dates: start: 20080601
  2. ROHYPNOL [Concomitant]
  3. CONTOMIN [Concomitant]
  4. AKINETON [Concomitant]
  5. LULLAN [Concomitant]
  6. DEPAKENE [Concomitant]
     Route: 048

REACTIONS (1)
  - DYSACUSIS [None]
